FAERS Safety Report 26158875 (Version 1)
Quarter: 2025Q4

REPORT INFORMATION
  Report Type: Spontaneous
  Country: US (occurrence: US)
  Receive Date: 20251215
  Receipt Date: 20251215
  Transmission Date: 20260118
  Serious: No
  Sender: ROCHE
  Company Number: US-ROCHE-10000456346

PATIENT
  Age: 65 Year
  Sex: Female

DRUGS (8)
  1. INAVOLISIB [Suspect]
     Active Substance: INAVOLISIB
     Indication: Breast cancer
  2. PALBOCICLIB [Suspect]
     Active Substance: PALBOCICLIB
     Indication: Breast cancer
  3. FULVESTRANT [Suspect]
     Active Substance: FULVESTRANT
     Indication: Breast cancer
  4. DOXORUBICIN [Concomitant]
     Active Substance: DOXORUBICIN
  5. CYCLOPHOSPHAMIDE [Concomitant]
     Active Substance: CYCLOPHOSPHAMIDE
  6. PACLITAXEL [Concomitant]
     Active Substance: PACLITAXEL
  7. LETROZOLE [Concomitant]
     Active Substance: LETROZOLE
  8. METFORMIN [Concomitant]
     Active Substance: METFORMIN HYDROCHLORIDE
     Indication: Hyperglycaemia

REACTIONS (2)
  - Rash [Unknown]
  - Weight decreased [Unknown]
